FAERS Safety Report 11619927 (Version 2)
Quarter: 2015Q4

REPORT INFORMATION
  Report Type: Spontaneous
  Country: US (occurrence: US)
  Receive Date: 20151012
  Receipt Date: 20151112
  Transmission Date: 20160304
  Serious: No
  Sender: FDA-Public Use
  Company Number: US-PFIZER INC-2015335799

PATIENT
  Age: 47 Year
  Sex: Female
  Weight: 67 kg

DRUGS (3)
  1. CLARITIN [Concomitant]
     Active Substance: LORATADINE
     Dosage: ONE TABLET A DAY
     Route: 048
  2. FLU SHOT [Concomitant]
     Active Substance: INFLUENZA VIRUS VACCINE
  3. PREMPRO [Suspect]
     Active Substance: ESTROGENS, CONJUGATED\MEDROXYPROGESTERONE ACETATE
     Indication: MENOPAUSAL SYMPTOMS
     Dosage: 1 DF, DAILY
     Route: 048
     Dates: start: 20150910, end: 20151001

REACTIONS (3)
  - Dysphonia [Recovered/Resolved]
  - Drug hypersensitivity [Recovered/Resolved]
  - Asthma [Recovered/Resolved]

NARRATIVE: CASE EVENT DATE: 201509
